FAERS Safety Report 17992777 (Version 1)
Quarter: 2020Q3

REPORT INFORMATION
  Report Type: Report from Study
  Country: US (occurrence: US)
  Receive Date: 20200708
  Receipt Date: 20200708
  Transmission Date: 20201103
  Serious: Yes (Other)
  Sender: FDA-Public Use
  Company Number: US-VISTAPHARM, INC.-VER202007-001175

PATIENT
  Age: 17 Year
  Sex: Male

DRUGS (2)
  1. VALPROIC ACID. [Suspect]
     Active Substance: VALPROIC ACID
     Indication: BRAIN STEM GLIOMA
     Dosage: 15 MG/KG/DAY DIVIDED THREE TIMES A DAY (TID)
  2. VALPROIC ACID. [Suspect]
     Active Substance: VALPROIC ACID
     Dosage: 15 MG/KG/DAY THREE TIMES A DAY (TID) WAS ESCALATED BY 5 MG/KG/DAY EVERY THREE TO FIVE DAYS.

REACTIONS (3)
  - Drug ineffective for unapproved indication [Unknown]
  - Pulmonary embolism [Unknown]
  - Deep vein thrombosis [Unknown]
